FAERS Safety Report 12867188 (Version 3)
Quarter: 2018Q4

REPORT INFORMATION
  Report Type: Spontaneous
  Country: US (occurrence: US)
  Receive Date: 20161020
  Receipt Date: 20181126
  Transmission Date: 20190204
  Serious: Yes (Other)
  Sender: FDA-Public Use
  Company Number: US-JAZZ-2016-US-014430

PATIENT
  Sex: Male

DRUGS (21)
  1. DYAZIDE [Suspect]
     Active Substance: HYDROCHLOROTHIAZIDE\TRIAMTERENE
     Indication: PRODUCT USED FOR UNKNOWN INDICATION
  2. SUDAFED [Concomitant]
     Active Substance: PSEUDOEPHEDRINE HYDROCHLORIDE
  3. ADDERALL [Concomitant]
     Active Substance: AMPHETAMINE ASPARTATE\AMPHETAMINE SULFATE\DEXTROAMPHETAMINE SACCHARATE\DEXTROAMPHETAMINE SULFATE
  4. BUPROPION HCL [Concomitant]
     Active Substance: BUPROPION HYDROCHLORIDE
  5. CLONIDINE HCL [Concomitant]
     Active Substance: CLONIDINE HYDROCHLORIDE
  6. FLONASE [Concomitant]
     Active Substance: FLUTICASONE PROPIONATE
  7. LAMICTAL [Concomitant]
     Active Substance: LAMOTRIGINE
  8. METROGEL [Concomitant]
     Active Substance: METRONIDAZOLE
  9. MULTIVITAMINS [Concomitant]
     Active Substance: VITAMINS
  10. PROAIR HFA [Concomitant]
     Active Substance: ALBUTEROL SULFATE
  11. LATUDA [Suspect]
     Active Substance: LURASIDONE HYDROCHLORIDE
     Indication: PRODUCT USED FOR UNKNOWN INDICATION
  12. VICTOZA [Suspect]
     Active Substance: LIRAGLUTIDE
     Indication: PRODUCT USED FOR UNKNOWN INDICATION
  13. XYREM [Suspect]
     Active Substance: SODIUM OXYBATE
     Indication: NARCOLEPSY
     Dosage: 2.5 G, BID
     Route: 048
     Dates: start: 20160730, end: 201608
  14. BUSPIRONE HCL [Concomitant]
     Active Substance: BUSPIRONE HYDROCHLORIDE
  15. BENADRYL ALLERGY [Concomitant]
     Active Substance: DIPHENHYDRAMINE HYDROCHLORIDE
  16. NAPROXEN. [Concomitant]
     Active Substance: NAPROXEN
  17. OMEPRAZOLE. [Concomitant]
     Active Substance: OMEPRAZOLE
  18. XYREM [Suspect]
     Active Substance: SODIUM OXYBATE
     Indication: CATAPLEXY
     Dosage: DOSE ADJUSTMENTS
     Route: 048
     Dates: start: 201608, end: 201610
  19. XYREM [Suspect]
     Active Substance: SODIUM OXYBATE
     Dosage: 3.5 G, BID
     Route: 048
     Dates: start: 201610
  20. ALLEGRA ALLERGY [Concomitant]
     Active Substance: FEXOFENADINE HYDROCHLORIDE
  21. ASTEPRO [Concomitant]
     Active Substance: AZELASTINE HYDROCHLORIDE

REACTIONS (16)
  - Fatigue [Unknown]
  - Therapeutic response unexpected [Unknown]
  - Condition aggravated [Recovering/Resolving]
  - Malaise [Unknown]
  - Decreased appetite [Unknown]
  - Feeling abnormal [Unknown]
  - Somnolence [Unknown]
  - Hypertension [Recovering/Resolving]
  - Pancreatic disorder [Unknown]
  - Affective disorder [Recovering/Resolving]
  - Pre-existing condition improved [Unknown]
  - Abdominal discomfort [Unknown]
  - Dehydration [Not Recovered/Not Resolved]
  - Restlessness [Not Recovered/Not Resolved]
  - Weight decreased [Unknown]
  - Vomiting [Unknown]

NARRATIVE: CASE EVENT DATE: 2016
